FAERS Safety Report 24064635 (Version 2)
Quarter: 2025Q2

REPORT INFORMATION
  Report Type: Spontaneous
  Country: US (occurrence: US)
  Receive Date: 20240709
  Receipt Date: 20250527
  Transmission Date: 20250716
  Serious: Yes (Other)
  Sender: ASTELLAS
  Company Number: US-ASTELLAS-2024US019252

PATIENT
  Age: 60 Year
  Sex: Female

DRUGS (6)
  1. GILTERITINIB [Suspect]
     Active Substance: GILTERITINIB
     Indication: Acute myeloid leukaemia
     Dosage: 120 MG, ONCE DAILY
     Route: 065
     Dates: start: 202302, end: 202403
  2. GILTERITINIB [Suspect]
     Active Substance: GILTERITINIB
     Dosage: 80 MG, ONCE DAILY (DAY+66)
     Route: 065
  3. GILTERITINIB [Suspect]
     Active Substance: GILTERITINIB
     Dosage: 120 MG, ONCE DAILY
     Route: 065
  4. TACROLIMUS [Concomitant]
     Active Substance: TACROLIMUS
     Indication: Product used for unknown indication
     Route: 065
  5. POSACONAZOLE [Concomitant]
     Active Substance: POSACONAZOLE
     Indication: Product used for unknown indication
     Dosage: 300 MG, ONCE DAILY (ON DAY 0)
     Route: 065
  6. POSACONAZOLE [Concomitant]
     Active Substance: POSACONAZOLE
     Dosage: 200 MG, ONCE DAILY
     Route: 065

REACTIONS (2)
  - Clostridium difficile colitis [Unknown]
  - Enterococcal bacteraemia [Unknown]
